FAERS Safety Report 18519670 (Version 1)
Quarter: 2020Q4

REPORT INFORMATION
  Report Type: Report from Study
  Country: US (occurrence: US)
  Receive Date: 20201118
  Receipt Date: 20201118
  Transmission Date: 20210114
  Serious: Yes (Other)
  Sender: FDA-Public Use
  Company Number: US-OTSUKA-2020_028579

PATIENT
  Age: 79 Year
  Sex: Male
  Weight: 91.61 kg

DRUGS (1)
  1. ASTX727 [Suspect]
     Active Substance: CEDAZURIDINE\DECITABINE
     Indication: MYELODYSPLASTIC SYNDROME
     Dosage: 135MG (35 MG DECITABINE AND 100 MG CEDAZURIDINE) QD 1-5 DAYS EVERY 28-DAY CYCLE
     Route: 065
     Dates: start: 20201103

REACTIONS (3)
  - Asthenia [Unknown]
  - Blood count abnormal [Unknown]
  - Dizziness [Unknown]

NARRATIVE: CASE EVENT DATE: 20201107
